FAERS Safety Report 4280531-8 (Version None)
Quarter: 2004Q1

REPORT INFORMATION
  Report Type: 
  Country: None (occurrence: None)
  Receive Date: 20040127
  Receipt Date: 20040114
  Transmission Date: 20041129
  Serious: Yes (Hospitalization)
  Sender: FDA-Public Use
  Company Number: USA-2003-0009230

PATIENT
  Age: 1 Year
  Sex: Male

DRUGS (1)
  1. CEFDITOREN PIVOXIL (SIMILAR TO NDA 21-222) (CEFDITOREN PIVOXIL) [Suspect]
     Indication: IMPETIGO
     Dosage: ORAL
     Route: 048
     Dates: start: 20030630, end: 20030707

REACTIONS (7)
  - ANTIPHOSPHOLIPID SYNDROME [None]
  - BLOOD BILIRUBIN INCREASED [None]
  - BLOOD LACTATE DEHYDROGENASE INCREASED [None]
  - EVAN'S SYNDROME [None]
  - GRANULOCYTOPENIA [None]
  - PURPURA [None]
  - PYREXIA [None]
